FAERS Safety Report 13287740 (Version 2)
Quarter: 2017Q2

REPORT INFORMATION
  Report Type: Spontaneous
  Country: US (occurrence: US)
  Receive Date: 20170302
  Receipt Date: 20170511
  Transmission Date: 20170830
  Serious: No
  Sender: FDA-Public Use
  Company Number: US-ASTRAZENECA-2017SE20273

PATIENT
  Age: 22199 Day
  Sex: Female
  Weight: 118.7 kg

DRUGS (28)
  1. FLONASE ALLERGY RELIEF [Concomitant]
     Active Substance: FLUTICASONE PROPIONATE
     Dosage: 50 MICROGRAMS PER ACTUATION, TWO SPRAYS EACH NOSTRIL DAILY
  2. AVASTIN [Concomitant]
     Active Substance: BEVACIZUMAB
     Dosage: 100 MILLIGRAMS PER 4 MILLILITRES, AS DIRECTED
     Dates: start: 20151120
  3. PEROCET [Concomitant]
     Indication: PAIN
     Dosage: 10-325 MILLIGRAMS, ONE TABLET, EVERY SIX HOURS
     Route: 048
     Dates: start: 20170306
  4. FOSINOPRIL SODIUM. [Concomitant]
     Active Substance: FOSINOPRIL SODIUM
     Indication: BLOOD PRESSURE ABNORMAL
     Route: 048
  5. LEXAPRO [Concomitant]
     Active Substance: ESCITALOPRAM OXALATE
     Indication: MOOD ALTERED
     Route: 048
  6. TRIAMCINOLONE ACETONIDE. [Concomitant]
     Active Substance: TRIAMCINOLONE ACETONIDE
     Indication: RASH
     Dosage: TWO TO THREE TIMES DAILY FOR SEVEN TO TEN DAYS
  7. REGLAN [Concomitant]
     Active Substance: METOCLOPRAMIDE HYDROCHLORIDE
     Dosage: ONE TABLET,30 MINUTES BEFORE EACH MEAL AND BEFORE BEDTIME
  8. NOVOLOG [Concomitant]
     Active Substance: INSULIN ASPART
  9. FOSINOPRIL SODIUM. [Concomitant]
     Active Substance: FOSINOPRIL SODIUM
     Indication: RENAL DISORDER
     Route: 048
  10. KLOR-CON M20 [Concomitant]
     Active Substance: POTASSIUM CHLORIDE
  11. INSULIN [Concomitant]
     Active Substance: INSULIN NOS
     Dosage: 1 CCC/30 GAUGE X HALF INCH
  12. BYDUREON [Suspect]
     Active Substance: EXENATIDE
     Indication: TYPE 2 DIABETES MELLITUS
     Route: 058
     Dates: start: 20170119, end: 20170202
  13. METFORMIN HYDROCHLORIDE. [Concomitant]
     Active Substance: METFORMIN HYDROCHLORIDE
     Indication: DIABETES MELLITUS
     Dosage: HALF BY MOUTH, TWO TIMES A DAY
     Route: 048
  14. OMEPRAZOLE. [Suspect]
     Active Substance: OMEPRAZOLE
     Dosage: IN AM, ON EMPTY STOMACH, 30 MINUTES BEFORE BREAKFAST
     Route: 048
  15. FUROSEMIDE. [Concomitant]
     Active Substance: FUROSEMIDE
     Route: 048
  16. ALPRAZOLAM. [Concomitant]
     Active Substance: ALPRAZOLAM
     Route: 048
  17. ATENOLOL. [Suspect]
     Active Substance: ATENOLOL
     Dosage: 50 MG HALF TABLET, DAILY
     Route: 048
  18. TRESIBA [Concomitant]
     Active Substance: INSULIN DEGLUDEC
     Indication: DIABETES MELLITUS
     Dosage: 200 UNIT PER MILLILITRE, 62 UNITS ONCE A DAY
  19. LANTUS [Concomitant]
     Active Substance: INSULIN GLARGINE
     Dosage: 70 U IN AM AND 80 U IN PM
  20. CALCIUM CARBONATE-VITAMIN D [Concomitant]
     Active Substance: CALCIUM CARBONATE\VITAMIN D
     Dosage: 600-400 MILLIGRAMS- UNIT
  21. ERGOCALCIFEROL. [Concomitant]
     Active Substance: ERGOCALCIFEROL
     Dosage: 50000 UNITS, ONE BY MOUTH ONCE PER WEEK FOR 12 WEEKS
     Route: 048
  22. VITAMIN D3 [Concomitant]
     Active Substance: CHOLECALCIFEROL
     Dosage: 1000 UNIT, ONE CAPSULE TWO TIMES A DAY
     Route: 048
  23. LYRICA [Concomitant]
     Active Substance: PREGABALIN
  24. ASPIRIN. [Concomitant]
     Active Substance: ASPIRIN
     Route: 048
  25. ZOFRAN [Concomitant]
     Active Substance: ONDANSETRON HYDROCHLORIDE
     Indication: NAUSEA
  26. NORCO [Concomitant]
     Active Substance: ACETAMINOPHEN\HYDROCODONE BITARTRATE
     Indication: PAIN
     Dosage: 10-325 MILLIGRAMS, ONE TABLET EVERY EIGHT HOURS AS NEEDED
  27. METHYLPREDNISOLONE. [Concomitant]
     Active Substance: METHYLPREDNISOLONE
  28. NYSTATIN. [Concomitant]
     Active Substance: NYSTATIN
     Indication: RASH
     Dosage: TWO TO THREE TIMES DAILY UNTIL HEALED

REACTIONS (2)
  - Rash pruritic [Recovered/Resolved]
  - Adverse drug reaction [Unknown]

NARRATIVE: CASE EVENT DATE: 20170202
